FAERS Safety Report 9025322 (Version 5)
Quarter: 2014Q2

REPORT INFORMATION
  Report Type: Spontaneous
  Country: US (occurrence: US)
  Receive Date: 20130122
  Receipt Date: 20140424
  Transmission Date: 20141212
  Serious: Yes (Disabling)
  Sender: FDA-Public Use
  Company Number: US-009507513-1301USA008188

PATIENT
  Sex: Male
  Weight: 88.44 kg

DRUGS (8)
  1. PROPECIA [Suspect]
     Indication: ANDROGENETIC ALOPECIA
     Dosage: 1 MG, UNK
     Route: 048
     Dates: start: 20061007, end: 20080201
  2. NEXIUM [Concomitant]
     Indication: GASTROOESOPHAGEAL REFLUX DISEASE
     Dosage: UNK
     Dates: start: 20061007, end: 20100419
  3. ZYRTEC-D [Concomitant]
     Indication: HYPERSENSITIVITY
     Dosage: UNK
     Dates: start: 20030121
  4. NASAREL [Concomitant]
     Indication: ASTHMA
     Dosage: UNK
     Dates: start: 20030418, end: 20080307
  5. FLONASE [Concomitant]
     Indication: HYPERSENSITIVITY
     Dosage: UNK
     Dates: start: 20040728
  6. NASONEX [Concomitant]
     Indication: HYPERSENSITIVITY
     Dosage: UNK
     Route: 045
     Dates: start: 20041004
  7. CLARINEX (DESLORATADINE) [Concomitant]
     Indication: HYPERSENSITIVITY
     Dosage: UNK
     Dates: start: 20060810
  8. XYZAL [Concomitant]
     Indication: HYPERSENSITIVITY
     Dosage: UNK
     Dates: start: 20071023

REACTIONS (16)
  - Back injury [Unknown]
  - Cognitive disorder [Unknown]
  - Motion sickness [Unknown]
  - Adenotonsillectomy [Unknown]
  - Urinary tract obstruction [Unknown]
  - Benign prostatic hyperplasia [Unknown]
  - Urinary tract disorder [Unknown]
  - Osteoarthritis [Unknown]
  - Urine flow decreased [Unknown]
  - Mole excision [Unknown]
  - Type V hyperlipidaemia [Unknown]
  - Organic erectile dysfunction [Unknown]
  - Semen volume decreased [Unknown]
  - Sexual dysfunction [Unknown]
  - Erectile dysfunction [Unknown]
  - Libido decreased [Unknown]
